FAERS Safety Report 7131544-X (Version None)
Quarter: 2010Q4

REPORT INFORMATION
  Report Type: 
  Country: None (occurrence: None)
  Receive Date: 20101201
  Receipt Date: 20101122
  Transmission Date: 20110411
  Serious: Yes (Other)
  Sender: FDA-Public Use
  Company Number: GB-ABBOTT-10P-167-0677538-00

PATIENT
  Sex: Female
  Weight: 115 kg

DRUGS (5)
  1. HUMIRA [Suspect]
     Indication: PSORIATIC ARTHROPATHY
     Route: 058
     Dates: start: 20090701
  2. DICLOFENAC [Concomitant]
     Indication: PSORIATIC ARTHROPATHY
     Route: 048
  3. PREVACID [Concomitant]
     Indication: GASTRIC DISORDER
     Route: 048
  4. PREVACID [Concomitant]
     Indication: PROPHYLAXIS
  5. PARACETAMOL [Concomitant]
     Indication: ANALGESIC THERAPY
     Route: 048
     Dates: start: 20080501

REACTIONS (5)
  - ABDOMINAL DISCOMFORT [None]
  - FOOD ALLERGY [None]
  - PARAESTHESIA ORAL [None]
  - RESPIRATORY DISORDER [None]
  - SWELLING FACE [None]
